FAERS Safety Report 25363841 (Version 1)
Quarter: 2025Q2

REPORT INFORMATION
  Report Type: Spontaneous
  Country: HU (occurrence: HU)
  Receive Date: 20250527
  Receipt Date: 20250527
  Transmission Date: 20250717
  Serious: Yes (Other)
  Sender: ROCHE
  Company Number: HU-ROCHE-10000289626

PATIENT
  Age: 76 Year

DRUGS (6)
  1. HERCEPTIN [Suspect]
     Active Substance: TRASTUZUMAB
     Indication: Breast cancer metastatic
     Route: 065
  2. HERCEPTIN [Suspect]
     Active Substance: TRASTUZUMAB
     Indication: HER2 protein overexpression
  3. HERCEPTIN [Suspect]
     Active Substance: TRASTUZUMAB
     Indication: Adenocarcinoma gastric
  4. HERCEPTIN [Suspect]
     Active Substance: TRASTUZUMAB
     Indication: HER2 positive gastric cancer
  5. HERCEPTIN [Suspect]
     Active Substance: TRASTUZUMAB
     Indication: Oesophageal adenocarcinoma
  6. HERCEPTIN [Suspect]
     Active Substance: TRASTUZUMAB
     Indication: Breast inflammation

REACTIONS (2)
  - Pruritus [Unknown]
  - Skin abrasion [Unknown]
